FAERS Safety Report 9966010 (Version 1)
Quarter: 2014Q1

REPORT INFORMATION
  Report Type: Report from Study
  Country: US (occurrence: US)
  Receive Date: 20140305
  Receipt Date: 20140305
  Transmission Date: 20141002
  Serious: No
  Sender: FDA-Public Use
  Company Number: US-ABBVIE-13P-163-1123844-00

PATIENT
  Age: 58 Year
  Sex: Female

DRUGS (5)
  1. HUMIRA [Suspect]
     Indication: RHEUMATOID ARTHRITIS
     Route: 058
     Dates: start: 201201
  2. METHOTREXATE [Concomitant]
     Indication: RHEUMATOID ARTHRITIS
  3. TEMAZEPAM [Concomitant]
     Indication: INSOMNIA
     Dosage: 1 AT BEDTIME
  4. AMITRIPTYLINE [Concomitant]
     Indication: INSOMNIA
     Dosage: 1 AT BEDTIME
  5. ALPRAZOLAM [Concomitant]
     Indication: ANXIETY

REACTIONS (1)
  - Injection site pain [Recovered/Resolved]
